FAERS Safety Report 4617757-7 (Version None)
Quarter: 2005Q1

REPORT INFORMATION
  Report Type: 
  Country: None (occurrence: None)
  Receive Date: 20050322
  Receipt Date: 20050309
  Transmission Date: 20050727
  Serious: Yes (Hospitalization, Other)
  Sender: FDA-Public Use
  Company Number: 2005043012

PATIENT
  Age: 14 Year
  Sex: Female

DRUGS (3)
  1. ZOLOFT [Suspect]
     Indication: DEPRESSION
     Dosage: 25 MG (25 MG, 1 IN 1 D),
  2. ZOLOFT [Suspect]
     Indication: OBSESSIVE-COMPULSIVE DISORDER
     Dosage: 25 MG (25 MG, 1 IN 1 D),
  3. CYAMEMAZINE (CYAMEMAZINE) [Concomitant]

REACTIONS (3)
  - BRIEF PSYCHOTIC DISORDER WITH MARKED STRESSORS [None]
  - HALLUCINATION, AUDITORY [None]
  - PHOBIA [None]
